FAERS Safety Report 7965178-1 (Version None)
Quarter: 2011Q4

REPORT INFORMATION
  Report Type: 
  Country: None (occurrence: None)
  Receive Date: 20111208
  Receipt Date: 20111121
  Transmission Date: 20120403
  Serious: No
  Sender: FDA-Public Use
  Company Number: US-BAYER-2011-113943

PATIENT
  Age: 43 Year
  Sex: Female

DRUGS (1)
  1. ALEVE (CAPLET) [Suspect]
     Dosage: 1 U, QD
     Route: 048
     Dates: start: 20111117, end: 20111121

REACTIONS (5)
  - VOMITING [None]
  - DIARRHOEA [None]
  - DYSURIA [None]
  - SOMNOLENCE [None]
  - NAUSEA [None]
